FAERS Safety Report 8233896-6 (Version None)
Quarter: 2012Q1

REPORT INFORMATION
  Report Type: 
  Country: None (occurrence: None)
  Receive Date: 20120326
  Receipt Date: 20120316
  Transmission Date: 20120608
  Serious: Yes (Hospitalization)
  Sender: FDA-Public Use
  Company Number: US-BAYER-2012-026464

PATIENT
  Age: 35 Year
  Sex: Female

DRUGS (1)
  1. BEYAZ [Suspect]
     Indication: CONTRACEPTION
     Dosage: 1 DF, QD
     Route: 048
     Dates: start: 20110515, end: 20110720

REACTIONS (3)
  - DEEP VEIN THROMBOSIS [None]
  - BASAL GANGLIA INFARCTION [None]
  - PULMONARY EMBOLISM [None]
